FAERS Safety Report 8302097-5 (Version None)
Quarter: 2012Q2

REPORT INFORMATION
  Report Type: 
  Country: None (occurrence: None)
  Receive Date: 20120418
  Receipt Date: 20120418
  Transmission Date: 20120825
  Serious: Yes (Hospitalization)
  Sender: FDA-Public Use
  Company Number: None

PATIENT
  Sex: Female
  Weight: 105.2 kg

DRUGS (2)
  1. CARBOPLATIN [Suspect]
     Dosage: 559 MG
     Dates: end: 20120106
  2. TAXOL [Suspect]
     Dosage: 160 MG
     Dates: end: 20120113

REACTIONS (3)
  - ARTHRALGIA [None]
  - DEVICE RELATED SEPSIS [None]
  - CYSTITIS [None]
